FAERS Safety Report 20642790 (Version 6)
Quarter: 2022Q2

REPORT INFORMATION
  Report Type: Spontaneous
  Country: US (occurrence: US)
  Receive Date: 20220328
  Receipt Date: 20220616
  Transmission Date: 20220721
  Serious: No
  Sender: FDA-Public Use
  Company Number: US-GLAXOSMITHKLINE-US2022053678

PATIENT
  Age: 61 Year
  Sex: Female

DRUGS (2)
  1. ZEJULA [Suspect]
     Active Substance: NIRAPARIB
     Indication: Fallopian tube cancer
     Dosage: 200 MG, QD
     Route: 048
     Dates: start: 20220317, end: 20220331
  2. ZEJULA [Suspect]
     Active Substance: NIRAPARIB
     Indication: Genital neoplasm malignant female
     Dosage: 100 MG, QD
     Route: 048
     Dates: start: 20220413

REACTIONS (10)
  - Headache [Unknown]
  - Thirst [Unknown]
  - Hot flush [Unknown]
  - Chest discomfort [Recovered/Resolved]
  - Platelet count decreased [Unknown]
  - Depression [Unknown]
  - Insomnia [Recovering/Resolving]
  - Blood pressure increased [Unknown]
  - Constipation [Unknown]
  - Nausea [Unknown]

NARRATIVE: CASE EVENT DATE: 20220301
